FAERS Safety Report 9425695 (Version 2)
Quarter: 2013Q3

REPORT INFORMATION
  Report Type: Report from Study
  Country: US (occurrence: US)
  Receive Date: 20130729
  Receipt Date: 20130805
  Transmission Date: 20140515
  Serious: Yes (Hospitalization)
  Sender: FDA-Public Use
  Company Number: US-CELGENEUS-163-C4047-13073094

PATIENT
  Age: 67 Year
  Sex: Female
  Weight: 84.9 kg

DRUGS (4)
  1. CC-4047 [Suspect]
     Indication: PLASMA CELL MYELOMA
     Dosage: 4 MILLIGRAM
     Route: 048
     Dates: start: 20111115, end: 20130718
  2. CC-4047 [Suspect]
     Dosage: 4 MILLIGRAM
     Route: 048
     Dates: start: 20130721
  3. CARFILZOMIB [Suspect]
     Indication: PLASMA CELL MYELOMA
     Route: 041
     Dates: start: 20111115, end: 20130717
  4. CARFILZOMIB [Suspect]
     Route: 041
     Dates: start: 20130723, end: 20130724

REACTIONS (1)
  - Fluid overload [Recovered/Resolved]
